FAERS Safety Report 6234727-6 (Version None)
Quarter: 2009Q2

REPORT INFORMATION
  Report Type: 
  Country: None (occurrence: None)
  Receive Date: 20090618
  Receipt Date: 20090611
  Transmission Date: 20091009
  Serious: Yes (Hospitalization)
  Sender: FDA-Public Use
  Company Number: AU-BAYER-200923212GPV

PATIENT
  Age: 48 Year
  Sex: Male

DRUGS (3)
  1. SORAFENIB [Suspect]
     Indication: RENAL CELL CARCINOMA
     Route: 048
     Dates: start: 20090511, end: 20090601
  2. NORFLOXACIN [Concomitant]
     Indication: CYSTITIS
     Route: 048
     Dates: start: 20090526
  3. RULIDE [Concomitant]
     Indication: LOCAL SWELLING
     Route: 048
     Dates: start: 20090519, end: 20090524

REACTIONS (3)
  - ABDOMINAL PAIN [None]
  - EOSINOPHILIC CYSTITIS [None]
  - LIVER FUNCTION TEST ABNORMAL [None]
